FAERS Safety Report 7568828-7 (Version None)
Quarter: 2011Q2

REPORT INFORMATION
  Report Type: 
  Country: None (occurrence: None)
  Receive Date: 20110623
  Receipt Date: 20110610
  Transmission Date: 20111010
  Serious: Yes (Other)
  Sender: FDA-Public Use
  Company Number: US-AMGEN-USASP2011030020

PATIENT
  Sex: Female

DRUGS (8)
  1. PREMARIN [Concomitant]
     Dosage: UNK
  2. COLACE [Concomitant]
     Dosage: UNK
  3. PROLIA [Suspect]
     Indication: OSTEOPOROSIS POSTMENOPAUSAL
     Dosage: UNK
     Dates: start: 20110301
  4. MULTI-VITAMINS [Concomitant]
     Dosage: UNK
  5. HYDROCHLOROTHIAZIDE [Concomitant]
     Dosage: 1 MG, QWK
  6. SYNTHROID [Concomitant]
     Dosage: UNK
  7. SINEMET [Concomitant]
     Dosage: UNK
  8. CALCIUM CARBONATE [Concomitant]
     Dosage: UNK

REACTIONS (4)
  - VULVOVAGINAL DISCOMFORT [None]
  - HAEMORRHOIDS [None]
  - PERSONALITY CHANGE [None]
  - PERINEAL PAIN [None]
